FAERS Safety Report 20986285 (Version 1)
Quarter: 2022Q2

REPORT INFORMATION
  Report Type: Report from Study
  Country: US (occurrence: US)
  Receive Date: 20220621
  Receipt Date: 20220621
  Transmission Date: 20220721
  Serious: Yes (Other)
  Sender: FDA-Public Use
  Company Number: US-ABBVIE-22K-163-4437356-00

PATIENT
  Sex: Female

DRUGS (1)
  1. IMBRUVICA [Suspect]
     Active Substance: IBRUTINIB
     Indication: Non-Hodgkin^s lymphoma
     Route: 048
     Dates: start: 20210921

REACTIONS (7)
  - Loss of consciousness [Unknown]
  - Heart rate increased [Unknown]
  - Contusion [Unknown]
  - Muscle spasms [Unknown]
  - Palpitations [Unknown]
  - Dizziness [Unknown]
  - Fall [Unknown]
